FAERS Safety Report 11540355 (Version 1)
Quarter: 2015Q3

REPORT INFORMATION
  Report Type: Spontaneous
  Country: US (occurrence: US)
  Receive Date: 20150923
  Receipt Date: 20150923
  Transmission Date: 20151125
  Serious: No
  Sender: FDA-Public Use
  Company Number: US-BEH-2014044404

PATIENT
  Sex: Female
  Weight: 81 kg

DRUGS (10)
  1. MESTINON [Concomitant]
     Active Substance: PYRIDOSTIGMINE BROMIDE
  2. MULTIVITAMINS [Concomitant]
     Active Substance: VITAMINS
  3. LISINOPRIL. [Concomitant]
     Active Substance: LISINOPRIL
  4. ALL OTHER THERAPEUTIC PRODUCTS [Concomitant]
     Active Substance: UNSPECIFIED INGREDIENT
  5. LEVOTHYROXINE. [Concomitant]
     Active Substance: LEVOTHYROXINE
  6. PRIVIGEN [Suspect]
     Active Substance: HUMAN IMMUNOGLOBULIN G
     Route: 042
  7. PRIVIGEN [Suspect]
     Active Substance: HUMAN IMMUNOGLOBULIN G
     Indication: MYASTHENIA GRAVIS
     Dosage: 35 G X 3 CONSECUTIVE DAYS FOLLOWED BY 35 G IV ONE PER MONTH
     Route: 042
  8. ASPIRIN. [Concomitant]
     Active Substance: ASPIRIN
  9. GLUCOSAMINE [Concomitant]
     Active Substance: GLUCOSAMINE
  10. FISH OIL [Concomitant]
     Active Substance: FISH OIL

REACTIONS (1)
  - Dyspnoea [Unknown]
